FAERS Safety Report 9120866 (Version 1)
Quarter: 2013Q1

REPORT INFORMATION
  Report Type: Spontaneous
  Country: US (occurrence: US)
  Receive Date: 20130226
  Receipt Date: 20130226
  Transmission Date: 20140127
  Serious: No
  Sender: FDA-Public Use
  Company Number: US-ASTRAZENECA-2013SE09748

PATIENT
  Age: 78 Year
  Sex: Female
  Weight: 59 kg

DRUGS (4)
  1. CRESTOR [Suspect]
     Indication: BLOOD CHOLESTEROL ABNORMAL
     Route: 048
     Dates: start: 2011
  2. CALCIUM [Concomitant]
     Indication: OSTEOPOROSIS
  3. VITAMIN D [Concomitant]
     Indication: OSTEOPOROSIS
  4. LIPITOR [Concomitant]

REACTIONS (3)
  - Therapeutic response unexpected [Unknown]
  - Osteoporosis [Unknown]
  - Hypertension [Unknown]
